FAERS Safety Report 10189634 (Version 1)
Quarter: 2014Q2

REPORT INFORMATION
  Report Type: Spontaneous
  Country: US (occurrence: US)
  Receive Date: 20140522
  Receipt Date: 20140522
  Transmission Date: 20141212
  Serious: Yes (Hospitalization)
  Sender: FDA-Public Use
  Company Number: US-SA-2014SA016894

PATIENT
  Age: 82 Year
  Sex: Male

DRUGS (10)
  1. LANTUS SOLOSTAR [Suspect]
     Indication: TYPE 2 DIABETES MELLITUS
     Dosage: DOSE:5 UNIT(S)
     Route: 051
  2. LANTUS SOLOSTAR [Suspect]
     Indication: TYPE 2 DIABETES MELLITUS
     Dosage: DOSE:10 UNIT(S)
     Route: 051
  3. SOLOSTAR [Concomitant]
  4. SOLOSTAR [Concomitant]
  5. WELCHOL [Concomitant]
     Route: 065
  6. KAYEXALATE [Concomitant]
     Indication: BLOOD POTASSIUM INCREASED
     Route: 065
  7. LISINOPRIL [Concomitant]
     Indication: BLOOD PRESSURE
     Route: 065
  8. METFORMIN [Concomitant]
     Indication: BLOOD GLUCOSE
     Route: 065
  9. PAROXETINE [Concomitant]
     Indication: ANXIETY
     Route: 065
  10. SYNTHROID [Concomitant]
     Indication: THYROID DISORDER
     Route: 065

REACTIONS (3)
  - Cystitis [Unknown]
  - Blood glucose increased [Unknown]
  - Drug ineffective [Unknown]
